FAERS Safety Report 4966426-2 (Version None)
Quarter: 2006Q2

REPORT INFORMATION
  Report Type: 
  Country: None (occurrence: None)
  Receive Date: 20060407
  Receipt Date: 20050118
  Transmission Date: 20061013
  Serious: Yes (Hospitalization)
  Sender: FDA-Public Use
  Company Number: PL-ROCHE-393014

PATIENT
  Age: 51 Year
  Sex: Male
  Weight: 70 kg

DRUGS (2)
  1. PEGASYS [Suspect]
     Indication: DRUG USE FOR UNKNOWN INDICATION
     Route: 065
     Dates: start: 20021115, end: 20031015
  2. COPEGUS [Suspect]
     Indication: DRUG USE FOR UNKNOWN INDICATION
     Route: 065
     Dates: start: 20021115, end: 20031015

REACTIONS (6)
  - DEPRESSION [None]
  - EROSIVE DUODENITIS [None]
  - GASTRITIS EROSIVE [None]
  - GENERAL PHYSICAL HEALTH DETERIORATION [None]
  - IRRITABLE BOWEL SYNDROME [None]
  - SUICIDE ATTEMPT [None]
